FAERS Safety Report 13054786 (Version 2)
Quarter: 2017Q2

REPORT INFORMATION
  Report Type: Report from Study
  Country: US (occurrence: US)
  Receive Date: 20161222
  Receipt Date: 20170418
  Transmission Date: 20170830
  Serious: Yes (Death, Hospitalization)
  Sender: FDA-Public Use
  Company Number: US-PFIZER INC-2016586722

PATIENT
  Age: 64 Year
  Sex: Female

DRUGS (2)
  1. SUTENT [Suspect]
     Active Substance: SUNITINIB MALATE
     Dosage: 50 MG, DAILY (12.5 MG CAPSULES A TOTAL OF 4 CAPSULES)
     Route: 048
     Dates: start: 20161130, end: 20161213
  2. SUTENT [Suspect]
     Active Substance: SUNITINIB MALATE
     Indication: RENAL CELL CARCINOMA
     Dosage: 50 MG, CYCLIC (DAILY FOR DAY 1-DAY28)
     Route: 048
     Dates: start: 20161130, end: 20161213

REACTIONS (2)
  - Mental status changes [Unknown]
  - Neoplasm progression [Fatal]

NARRATIVE: CASE EVENT DATE: 20161213
